FAERS Safety Report 20124454 (Version 1)
Quarter: 2021Q4

REPORT INFORMATION
  Report Type: Spontaneous
  Country: ES (occurrence: ES)
  Receive Date: 20211129
  Receipt Date: 20211129
  Transmission Date: 20220303
  Serious: Yes (Other)
  Sender: FDA-Public Use
  Company Number: None

PATIENT
  Age: 78 Year
  Sex: Female

DRUGS (10)
  1. FENTANYL TRANSDERMAL SYSTEM [Suspect]
     Active Substance: FENTANYL
     Dosage: 12 MCG, MATRIX
     Route: 062
     Dates: start: 20210916, end: 20210917
  2. SIMVASTATINA CINFA [Concomitant]
     Dosage: 20 MG 28 TABLETS
     Route: 048
     Dates: start: 20191002
  3. LEVOTHYROXINE SODIUM [Concomitant]
     Active Substance: LEVOTHYROXINE SODIUM
     Dosage: 75 MCG ,100 TABLETS
     Route: 048
     Dates: start: 20150716
  4. RIVOTRIL [Concomitant]
     Active Substance: CLONAZEPAM
     Dosage: 0.5 MG ,60 TABLETS
     Route: 048
     Dates: start: 20191216
  5. EDOXABAN TOSYLATE [Concomitant]
     Active Substance: EDOXABAN TOSYLATE
     Dosage: 60 MG ,28 TABLETS
     Route: 048
     Dates: start: 20201224
  6. DEXKETOPROFEN TROMETAMOL [Concomitant]
     Active Substance: DEXKETOPROFEN TROMETAMOL
     Dosage: 25 MG , 20 TABLETS
     Route: 048
     Dates: start: 20170602
  7. ACETAMINOPHEN [Concomitant]
     Active Substance: ACETAMINOPHEN
     Dosage: 650 MG , 40 TABLETS
     Route: 048
     Dates: start: 20150113
  8. RABEPRAZOLE SODIUM [Concomitant]
     Active Substance: RABEPRAZOLE SODIUM
     Dosage: 10 MG ,28 TABLETS
     Route: 048
     Dates: start: 20141009
  9. FUROSEMIDE [Concomitant]
     Active Substance: FUROSEMIDE
     Dosage: 40 MG ,30 TABLETS
     Route: 048
     Dates: start: 20170103
  10. BISOPROLOL FUMARATE [Concomitant]
     Active Substance: BISOPROLOL FUMARATE
     Dosage: 2.5 MG ,28 TABLETS
     Route: 048
     Dates: start: 20210621

REACTIONS (2)
  - Bradykinesia [Recovered/Resolved]
  - Somnolence [Recovered/Resolved]

NARRATIVE: CASE EVENT DATE: 20210917
